FAERS Safety Report 16968038 (Version 1)
Quarter: 2019Q4

REPORT INFORMATION
  Report Type: Spontaneous
  Country: CD (occurrence: CD)
  Receive Date: 20191028
  Receipt Date: 20191028
  Transmission Date: 20200122
  Serious: Yes (Death, Hospitalization, Other)
  Sender: FDA-Public Use
  Company Number: NVSC2019CD012526

PATIENT
  Age: 52 Year
  Sex: Male
  Weight: 58 kg

DRUGS (1)
  1. GLIVEC [Suspect]
     Active Substance: IMATINIB MESYLATE
     Indication: CHRONIC MYELOID LEUKAEMIA
     Dosage: UNK
     Route: 065

REACTIONS (15)
  - Respiratory tract infection [Fatal]
  - Oedema peripheral [Unknown]
  - Aspergillus infection [Fatal]
  - Asthenia [Unknown]
  - Cough [Unknown]
  - Lung disorder [Fatal]
  - Respiratory distress [Fatal]
  - Anaemia [Fatal]
  - White blood cell count increased [Fatal]
  - Tachycardia [Unknown]
  - Tachypnoea [Unknown]
  - Hepatomegaly [Unknown]
  - Pyrexia [Unknown]
  - Dyspnoea [Unknown]
  - Platelet count decreased [Unknown]

NARRATIVE: CASE EVENT DATE: 20190514
